FAERS Safety Report 15536826 (Version 2)
Quarter: 2018Q4

REPORT INFORMATION
  Report Type: Spontaneous
  Country: US (occurrence: US)
  Receive Date: 20181022
  Receipt Date: 20181107
  Transmission Date: 20190205
  Serious: Yes (Other)
  Sender: FDA-Public Use
  Company Number: US-PFIZER INC-2018428906

PATIENT
  Age: 87 Year
  Sex: Female

DRUGS (2)
  1. NORVASC [Suspect]
     Active Substance: AMLODIPINE BESYLATE
     Indication: BLOOD PRESSURE ABNORMAL
     Dosage: UNK
  2. LIPITOR [Suspect]
     Active Substance: ATORVASTATIN CALCIUM
     Dosage: UNK

REACTIONS (9)
  - Cerebrovascular accident [Unknown]
  - Blood pressure inadequately controlled [Unknown]
  - Impaired driving ability [Unknown]
  - Flushing [Recovered/Resolved]
  - Myocardial infarction [Unknown]
  - Coronary artery occlusion [Unknown]
  - Palpitations [Unknown]
  - Malaise [Unknown]
  - Brain neoplasm [Unknown]
